FAERS Safety Report 7656615-0 (Version None)
Quarter: 2011Q3

REPORT INFORMATION
  Report Type: 
  Country: None (occurrence: None)
  Receive Date: 20110804
  Receipt Date: 20110803
  Transmission Date: 20111222
  Serious: Yes (Other)
  Sender: FDA-Public Use
  Company Number: US-PFIZER INC-2011154610

PATIENT
  Sex: Female
  Weight: 74.83 kg

DRUGS (15)
  1. VITAMIN B-12 [Concomitant]
     Dosage: UNK
     Route: 048
  2. FLAXSEED OIL [Concomitant]
     Dosage: UNK
     Route: 048
  3. VITAMIN B [Concomitant]
     Dosage: UNK
     Route: 048
  4. BETASERON [Concomitant]
     Indication: MULTIPLE SCLEROSIS
     Dosage: UNK, 1X/DAY
  5. BETASERON [Concomitant]
     Dosage: UNK
  6. VITAMIN B COMPLEX CAP [Concomitant]
     Dosage: UNK
     Route: 048
  7. CALCIUM [Concomitant]
     Dosage: UNK
     Route: 048
  8. ACETYLSALICYLIC ACID [Concomitant]
     Dosage: 81 MG, UNK
     Route: 048
  9. MULTI-VITAMINS [Concomitant]
     Dosage: UNK
  10. FISH OIL [Concomitant]
     Dosage: UNK
     Route: 048
  11. TOVIAZ [Suspect]
     Indication: HYPERTONIC BLADDER
     Dosage: 4 MG, 1X/DAY
     Route: 048
     Dates: start: 20090101, end: 20110701
  12. VITAMIN D [Concomitant]
     Dosage: UNK
     Route: 048
  13. TOVIAZ [Suspect]
     Dosage: 8 MG, UNK
     Route: 048
     Dates: start: 20110728
  14. VITAMIN E [Concomitant]
     Dosage: UNK
     Route: 048
  15. BETASERON [Concomitant]
     Dosage: UNK

REACTIONS (3)
  - RASH [None]
  - DRY MOUTH [None]
  - NOCTURIA [None]
